FAERS Safety Report 8053812-X (Version None)
Quarter: 2012Q1

REPORT INFORMATION
  Report Type: 
  Country: None (occurrence: None)
  Receive Date: 20120118
  Receipt Date: 20120109
  Transmission Date: 20120608
  Serious: Yes (Death, Hospitalization)
  Sender: FDA-Public Use
  Company Number: FI-AMGEN-UK204024

PATIENT
  Age: 65 Year
  Sex: Male

DRUGS (5)
  1. NEULASTA [Suspect]
     Indication: CHEMOTHERAPY
     Dosage: 6 MG, UNK
     Route: 058
     Dates: start: 20060812, end: 20061121
  2. DOXORUBICIN HCL [Concomitant]
     Dosage: 47 MG, Q2WK
     Route: 042
     Dates: start: 20060720, end: 20061020
  3. VINBLASTINE SULFATE [Concomitant]
     Dosage: 10 MG, Q2WK
     Route: 042
     Dates: start: 20060720, end: 20061020
  4. BLEOMYCIN SULFATE [Suspect]
     Dosage: 15 MG, Q2WK
     Route: 042
     Dates: start: 20060720, end: 20061020
  5. DACARBAZINE [Concomitant]
     Dosage: 700 MG, Q2WK
     Route: 042
     Dates: start: 20060720, end: 20061020

REACTIONS (3)
  - ACUTE RESPIRATORY DISTRESS SYNDROME [None]
  - PNEUMONITIS [None]
  - DRUG INTERACTION [None]
